FAERS Safety Report 6302150-1 (Version None)
Quarter: 2009Q3

REPORT INFORMATION
  Report Type: 
  Country: None (occurrence: None)
  Receive Date: 20090807
  Receipt Date: 20090730
  Transmission Date: 20100115
  Serious: Yes (Life-Threatening, Hospitalization, Other)
  Sender: FDA-Public Use
  Company Number: DE-MERCK-0904DEU00007

PATIENT
  Age: 80 Year
  Sex: Male
  Weight: 62 kg

DRUGS (11)
  1. VYTORIN [Suspect]
     Indication: CORONARY ARTERY DISEASE
     Route: 048
     Dates: start: 20080401, end: 20090227
  2. ALLOPURINOL [Concomitant]
     Indication: GOUT
     Route: 048
  3. ASPIRIN [Concomitant]
     Indication: CORONARY ARTERY DISEASE
     Route: 048
  4. RAMIPRIL [Concomitant]
     Indication: CORONARY ARTERY DISEASE
     Route: 048
  5. RAMIPRIL [Concomitant]
     Indication: LEFT VENTRICULAR FAILURE
     Route: 048
  6. FUROSEMIDE SODIUM [Concomitant]
     Indication: RENAL FAILURE
     Route: 048
  7. PANTOPRAZOLE SODIUM [Concomitant]
     Indication: MALLORY-WEISS SYNDROME
     Route: 048
  8. CLOPIDOGREL BISULFATE [Concomitant]
     Indication: ACUTE MYOCARDIAL INFARCTION
     Route: 048
     Dates: start: 20080401, end: 20090301
  9. DIGITOXIN [Concomitant]
     Indication: ATRIAL FIBRILLATION
     Route: 048
  10. CARVEDILOL [Concomitant]
     Indication: ATRIAL FIBRILLATION
     Route: 048
     Dates: end: 20090301
  11. ETORICOXIB [Suspect]
     Indication: GOUT
     Route: 048
     Dates: start: 20090218, end: 20090224

REACTIONS (8)
  - BRADYARRHYTHMIA [None]
  - DECUBITUS ULCER [None]
  - GASTRITIS [None]
  - GOUT [None]
  - PSEUDOMEMBRANOUS COLITIS [None]
  - REFLUX OESOPHAGITIS [None]
  - RENAL FAILURE ACUTE [None]
  - RHABDOMYOLYSIS [None]
